FAERS Safety Report 6054999-0 (Version None)
Quarter: 2009Q1

REPORT INFORMATION
  Report Type: 
  Country: None (occurrence: None)
  Receive Date: 20090128
  Receipt Date: 20090115
  Transmission Date: 20090719
  Serious: Yes (Life-Threatening, Hospitalization)
  Sender: FDA-Public Use
  Company Number: FR-SANOFI-SYNTHELABO-A02200900082

PATIENT
  Sex: Female

DRUGS (17)
  1. STILNOX [Suspect]
     Indication: DRUG USE FOR UNKNOWN INDICATION
     Route: 048
  2. STILNOX [Interacting]
     Route: 048
     Dates: start: 20080302
  3. TRIATEC [Concomitant]
     Indication: DRUG USE FOR UNKNOWN INDICATION
     Route: 048
  4. CARDENSIEL [Concomitant]
     Indication: DRUG USE FOR UNKNOWN INDICATION
     Route: 048
  5. PLAVIX [Concomitant]
     Indication: DRUG USE FOR UNKNOWN INDICATION
     Route: 048
  6. AUGMENTIN '125' [Concomitant]
     Indication: DRUG USE FOR UNKNOWN INDICATION
     Route: 048
     Dates: start: 20080302
  7. ATHYMIL [Interacting]
     Indication: DRUG USE FOR UNKNOWN INDICATION
     Route: 048
  8. RIVOTRIL [Interacting]
     Indication: DRUG USE FOR UNKNOWN INDICATION
     Route: 048
  9. RIVOTRIL [Interacting]
     Route: 048
     Dates: start: 20080302
  10. DIANTALVIC [Interacting]
     Indication: DRUG USE FOR UNKNOWN INDICATION
     Route: 048
  11. ACTISKENAN [Interacting]
     Indication: DRUG USE FOR UNKNOWN INDICATION
     Route: 048
     Dates: start: 20080226
  12. ACTISKENAN [Interacting]
     Dosage: 60 MG
     Route: 048
  13. ACTISKENAN [Interacting]
     Route: 048
     Dates: start: 20080302
  14. EQUANIL [Interacting]
     Indication: DRUG USE FOR UNKNOWN INDICATION
     Route: 048
     Dates: start: 20080226
  15. EQUANIL [Interacting]
     Route: 048
  16. EQUANIL [Interacting]
     Route: 048
     Dates: start: 20080302
  17. TERCIAN [Interacting]
     Indication: DRUG USE FOR UNKNOWN INDICATION
     Route: 048

REACTIONS (5)
  - DISTURBANCE IN ATTENTION [None]
  - DRUG INTERACTION [None]
  - DYSPHAGIA [None]
  - HYPOTENSION [None]
  - PNEUMONIA ASPIRATION [None]
